FAERS Safety Report 26123837 (Version 1)
Quarter: 2025Q4

REPORT INFORMATION
  Report Type: Report from Study
  Country: JP (occurrence: JP)
  Receive Date: 20251205
  Receipt Date: 20251205
  Transmission Date: 20260117
  Serious: Yes (Other)
  Sender: ALEXION PHARMACEUTICALS
  Company Number: JP-ASTRAZENECA-202409JPN009366JP

PATIENT
  Age: 11 Year
  Sex: Female
  Weight: 48.9 kg

DRUGS (4)
  1. KOSELUGO [Suspect]
     Active Substance: SELUMETINIB
     Indication: Neurofibroma
     Dosage: 70 MILLIGRAM, MOSTLY ON AN EMPTY STOMACH
     Dates: start: 20230111, end: 20230912
  2. KOSELUGO [Suspect]
     Active Substance: SELUMETINIB
     Dosage: 80 MILLIGRAM
  3. PETROLATUM [Concomitant]
     Active Substance: PETROLATUM
     Indication: Prophylaxis
     Dosage: UNK, EXTERNAL USE
     Route: 065
  4. GLYCOSAMINOGLYCANS [Concomitant]
     Active Substance: GLYCOSAMINOGLYCANS
     Indication: Prophylaxis
     Dosage: UNK, EXTERNAL USE
     Route: 065

REACTIONS (5)
  - Pneumonia mycoplasmal [Recovered/Resolved]
  - Dermatitis acneiform [Not Recovered/Not Resolved]
  - Stomatitis [Unknown]
  - Blood creatine phosphokinase increased [Unknown]
  - Rash [Unknown]

NARRATIVE: CASE EVENT DATE: 20201102
